FAERS Safety Report 6688813-7 (Version None)
Quarter: 2010Q2

REPORT INFORMATION
  Report Type: 
  Country: None (occurrence: None)
  Receive Date: 20100420
  Receipt Date: 20100407
  Transmission Date: 20101027
  Serious: Yes (Other)
  Sender: FDA-Public Use
  Company Number: FR-BRISTOL-MYERS SQUIBB COMPANY-15067416

PATIENT

DRUGS (1)
  1. APROVEL [Suspect]
     Route: 048

REACTIONS (1)
  - LIVER DISORDER [None]
